FAERS Safety Report 14571956 (Version 12)
Quarter: 2019Q4

REPORT INFORMATION
  Report Type: Report from Study
  Country: DE (occurrence: DE)
  Receive Date: 20180226
  Receipt Date: 20191015
  Transmission Date: 20200122
  Serious: Yes (Other)
  Sender: FDA-Public Use
  Company Number: PHHY2018DE029386

PATIENT
  Sex: Female
  Weight: 67 kg

DRUGS (6)
  1. FULVESTRANT. [Suspect]
     Active Substance: FULVESTRANT
     Indication: BREAST CANCER METASTATIC
     Dosage: 250 MG, QD (EVERY 4 WEEKS)
     Route: 030
     Dates: start: 20190801
  2. KISQALI [Suspect]
     Active Substance: RIBOCICLIB
     Dosage: 600 MG, QD (21 DAY CYCLE WITH 7 DAY PAUSE)
     Route: 048
     Dates: start: 20180913, end: 20190725
  3. KISQALI [Suspect]
     Active Substance: RIBOCICLIB
     Dosage: 600 MG, QD (21 DAY CYCLE WITH 7 DAY PAUSE)
     Route: 048
     Dates: start: 20190726
  4. LETROZOLE 1A PHARMA [Suspect]
     Active Substance: LETROZOLE
     Indication: BREAST CANCER METASTATIC
     Dosage: 2.5 MG, QD
     Route: 048
     Dates: start: 20180118, end: 20190725
  5. KISQALI [Suspect]
     Active Substance: RIBOCICLIB
     Dosage: 600 MG (21 DAY CYCLE WITH 7 DAY PAUSE)
     Route: 048
     Dates: start: 20180522, end: 20180830
  6. KISQALI [Suspect]
     Active Substance: RIBOCICLIB
     Indication: BREAST CANCER METASTATIC
     Dosage: 600 MG (21 DAY CYCLE WITH 7 DAY PAUSE)
     Route: 048
     Dates: start: 20180118, end: 20180513

REACTIONS (5)
  - Leukopenia [Recovered/Resolved]
  - Leukopenia [Recovered/Resolved]
  - Leukopenia [Recovering/Resolving]
  - Leukopenia [Recovered/Resolved]
  - Leukopenia [Recovered/Resolved]

NARRATIVE: CASE EVENT DATE: 20180212
